FAERS Safety Report 8936650 (Version 1)
Quarter: 2012Q4

REPORT INFORMATION
  Report Type: 
  Country: IT (occurrence: IT)
  Receive Date: 20121130
  Receipt Date: 20121130
  Transmission Date: 20130627
  Serious: Yes (Hospitalization)
  Sender: FDA-Public Use
  Company Number: IT-ABBOTT-12P-083-1012763-00

PATIENT
  Age: 24 Year
  Sex: Male

DRUGS (1)
  1. MACLADIN TM [Suspect]
     Indication: BRONCHITIS CHRONIC
     Dates: start: 20121113, end: 20121115

REACTIONS (1)
  - Thrombocytopenic purpura [Recovered/Resolved]
